FAERS Safety Report 11644250 (Version 1)
Quarter: 2015Q4

REPORT INFORMATION
  Report Type: Spontaneous
  Country: US (occurrence: None)
  Receive Date: 20151019
  Receipt Date: 20151019
  Transmission Date: 20160304
  Serious: Yes (Disabling)
  Sender: FDA-Public Use
  Company Number: None

PATIENT
  Age: 50 Year
  Sex: Female
  Weight: 79.38 kg

DRUGS (4)
  1. TRAMADOL. [Concomitant]
     Active Substance: TRAMADOL
  2. LEVAQUIN [Suspect]
     Active Substance: LEVOFLOXACIN
     Indication: SINUSITIS
     Dosage: ONE PILL ONCE DAILY
     Route: 048
     Dates: start: 20060106, end: 20080207
  3. MAGNESIUM [Concomitant]
     Active Substance: MAGNESIUM
  4. VITAMIN D3 [Concomitant]
     Active Substance: CHOLECALCIFEROL

REACTIONS (8)
  - Sinusitis [None]
  - Head discomfort [None]
  - Peripheral sensorimotor neuropathy [None]
  - Arthralgia [None]
  - Anxiety [None]
  - Ulnar neuritis [None]
  - Palpitations [None]
  - Tendon disorder [None]

NARRATIVE: CASE EVENT DATE: 20080213
